FAERS Safety Report 14161078 (Version 1)
Quarter: 2017Q4

REPORT INFORMATION
  Report Type: Spontaneous
  Country: US (occurrence: US)
  Receive Date: 20171104
  Receipt Date: 20171104
  Transmission Date: 20180321
  Serious: Yes (Disabling, Other)
  Sender: FDA-Public Use
  Company Number: None

PATIENT
  Age: 30 Year
  Sex: Male
  Weight: 74.25 kg

DRUGS (1)
  1. ZYRTEC [Suspect]
     Active Substance: CETIRIZINE HYDROCHLORIDE
     Indication: SEASONAL ALLERGY
     Dosage: ?          QUANTITY:1 TABLET(S);?
     Route: 048
     Dates: start: 20160125, end: 20171025

REACTIONS (6)
  - Pruritus [None]
  - Influenza like illness [None]
  - Urticaria [None]
  - Wheezing [None]
  - Withdrawal syndrome [None]
  - Tinnitus [None]

NARRATIVE: CASE EVENT DATE: 20171025
